FAERS Safety Report 16775373 (Version 5)
Quarter: 2019Q4

REPORT INFORMATION
  Report Type: Report from Study
  Country: US (occurrence: US)
  Receive Date: 20190905
  Receipt Date: 20191101
  Transmission Date: 20200122
  Serious: Yes (Other)
  Sender: FDA-Public Use
  Company Number: US-JNJFOC-20190805018

PATIENT
  Age: 87 Year
  Sex: Male

DRUGS (1)
  1. IMBRUVICA [Suspect]
     Active Substance: IBRUTINIB
     Indication: CHRONIC LYMPHOCYTIC LEUKAEMIA
     Dosage: 420 MG, QD
     Route: 048
     Dates: start: 20190619, end: 20190822

REACTIONS (8)
  - Rash [Recovered/Resolved]
  - Incorrect dose administered [Unknown]
  - Skin discolouration [Unknown]
  - Off label use [Unknown]
  - Burning sensation [Unknown]
  - Pruritus [Unknown]
  - Haemoglobin decreased [Unknown]
  - Insomnia [Unknown]

NARRATIVE: CASE EVENT DATE: 20190619
